FAERS Safety Report 24405093 (Version 1)
Quarter: 2024Q4

REPORT INFORMATION
  Report Type: Spontaneous
  Country: CN (occurrence: CN)
  Receive Date: 20241007
  Receipt Date: 20241007
  Transmission Date: 20250114
  Serious: No
  Sender: ROCHE
  Company Number: CN-ROCHE-3562611

PATIENT
  Age: 84 Year
  Sex: Male

DRUGS (5)
  1. GAZYVA [Suspect]
     Active Substance: OBINUTUZUMAB
     Indication: Diffuse large B-cell lymphoma
     Route: 042
     Dates: start: 20240306
  2. COLUMVI [Concomitant]
     Active Substance: GLOFITAMAB-GXBM
     Indication: Diffuse large B-cell lymphoma
     Route: 065
     Dates: start: 20240313
  3. COLUMVI [Concomitant]
     Active Substance: GLOFITAMAB-GXBM
     Route: 065
     Dates: start: 20240320
  4. COLUMVI [Concomitant]
     Active Substance: GLOFITAMAB-GXBM
     Dosage: 27-MAR-2024, 17-APR-2024
     Route: 065
  5. RITUXIMAB [Concomitant]
     Active Substance: RITUXIMAB
     Route: 065
     Dates: start: 20240229

REACTIONS (2)
  - Off label use [Unknown]
  - No adverse event [Unknown]
